FAERS Safety Report 17544812 (Version 1)
Quarter: 2020Q1

REPORT INFORMATION
  Report Type: Spontaneous
  Country: DE (occurrence: DE)
  Receive Date: 20200316
  Receipt Date: 20200316
  Transmission Date: 20200409
  Serious: Yes (Other)
  Sender: FDA-Public Use
  Company Number: DE-PFIZER INC-2020108125

PATIENT
  Age: 38 Year
  Sex: Female
  Weight: 76 kg

DRUGS (1)
  1. CYTOTEC [Suspect]
     Active Substance: MISOPROSTOL
     Indication: LABOUR INDUCTION
     Dosage: 8 FOLD OVER DOSIS
     Route: 048
     Dates: start: 20170119, end: 20170121

REACTIONS (4)
  - Product use in unapproved indication [Unknown]
  - Shock [Recovering/Resolving]
  - Off label use [Unknown]
  - Postpartum stress disorder [Recovering/Resolving]

NARRATIVE: CASE EVENT DATE: 20170121
